FAERS Safety Report 6258412-X (Version None)
Quarter: 2009Q3

REPORT INFORMATION
  Report Type: 
  Country: None (occurrence: None)
  Receive Date: 20090707
  Receipt Date: 20090625
  Transmission Date: 20100115
  Serious: Yes (Hospitalization)
  Sender: FDA-Public Use
  Company Number: FR-PFIZER INC-2009231865

PATIENT
  Age: 58 Year

DRUGS (13)
  1. ALDACTONE [Suspect]
     Dosage: 50 MG, 1X/DAY
     Route: 048
     Dates: start: 20090213, end: 20090220
  2. CORTANCYL [Suspect]
     Dosage: 20 MG, 6X/DAY
     Route: 048
     Dates: start: 20090214, end: 20090220
  3. NOROXIN [Suspect]
     Indication: URINARY TRACT INFECTION
     Dosage: 400 MG, 2X/DAY
     Route: 048
     Dates: start: 20090214, end: 20090219
  4. INIPOMP [Suspect]
     Indication: PROPHYLAXIS
     Dosage: 40 MG, 1X/DAY
     Route: 048
     Dates: start: 20090213, end: 20090220
  5. CACIT D3 [Suspect]
     Indication: PROPHYLAXIS
     Dosage: 7 DF, 1X/DAY
     Route: 048
     Dates: start: 20090213, end: 20090220
  6. DIFFU K [Suspect]
     Indication: ELECTROLYTE SUBSTITUTION THERAPY
     Dosage: 3 DF, 1X/DAY
     Route: 048
     Dates: start: 20090213, end: 20090220
  7. LOVENOX [Suspect]
     Indication: PROPHYLAXIS
     Dosage: 2 DF, 1X/DAY
     Route: 058
     Dates: start: 20090205, end: 20090216
  8. LASIX [Concomitant]
     Indication: OEDEMA PERIPHERAL
     Dosage: 80 MG, 1X/DAY
     Route: 048
     Dates: start: 20090205
  9. PREVISCAN [Concomitant]
     Indication: PROPHYLAXIS
     Dosage: 0.5 DF, 1X/DAY
     Route: 048
     Dates: start: 20090213, end: 20090220
  10. TRIATEC [Concomitant]
     Dosage: 2.5 MG, 1X/DAY
     Route: 048
     Dates: start: 20090213
  11. IMOVANE [Concomitant]
     Dosage: 7.5 MG, 1X/DAY
     Dates: start: 20090212, end: 20090220
  12. LEVOTHYROX [Concomitant]
  13. EZETIMIBE/SIMVASTATIN [Concomitant]

REACTIONS (1)
  - PANCREATITIS ACUTE [None]
